FAERS Safety Report 21527648 (Version 1)
Quarter: 2022Q4

REPORT INFORMATION
  Report Type: Report from Study
  Country: US (occurrence: US)
  Receive Date: 20221031
  Receipt Date: 20221031
  Transmission Date: 20230112
  Serious: No
  Sender: FDA-Public Use
  Company Number: US-NOVARTISTESTPH-NVSC2022US242543

PATIENT
  Age: 14 Year
  Sex: Male

DRUGS (1)
  1. ILARIS [Suspect]
     Active Substance: CANAKINUMAB
     Indication: Juvenile idiopathic arthritis
     Dosage: 200 MG, QMO
     Route: 058
     Dates: start: 202204

REACTIONS (8)
  - Illness [Recovering/Resolving]
  - Pyrexia [Recovering/Resolving]
  - Headache [Recovering/Resolving]
  - Pain in extremity [Recovering/Resolving]
  - Neck pain [Recovering/Resolving]
  - Diarrhoea [Recovering/Resolving]
  - Oxygen saturation [Recovering/Resolving]
  - Blood pressure measurement [Recovering/Resolving]

NARRATIVE: CASE EVENT DATE: 20221023
